FAERS Safety Report 4347919-8 (Version None)
Quarter: 2004Q2

REPORT INFORMATION
  Report Type: 
  Country: None (occurrence: None)
  Receive Date: 20040422
  Receipt Date: 20040413
  Transmission Date: 20050107
  Serious: Yes (Other)
  Sender: FDA-Public Use
  Company Number: 2004-DE-02006GD

PATIENT
  Sex: 0

DRUGS (6)
  1. CYCLOPHOSPHAMIDE (CYCLOHOSPHAMIDE) [Suspect]
     Indication: BONE MARROW CONDITIONING REGIMEN
     Dosage: 60 MG/KG (NR), IV
     Route: 042
  2. CYCLOPHOSPHAMIDE (CYCLOHOSPHAMIDE) [Suspect]
     Indication: MULTIPLE MYELOMA
     Dosage: 60 MG/KG (NR), IV
     Route: 042
  3. BUSULFAN [Suspect]
     Indication: BONE MARROW CONDITIONING REGIMEN
     Dosage: NR (NR, EVERY 6 HOURS), PO
     Route: 048
  4. BUSULFAN [Suspect]
     Indication: MULTIPLE MYELOMA
     Dosage: NR (NR, EVERY 6 HOURS), PO
     Route: 048
  5. MESNA [Concomitant]
  6. GRANULOCYTE COLONY STIMULATING FACTOR (GRANULOCYTE COLONY STIMULATING [Concomitant]

REACTIONS (1)
  - MUCOSAL INFLAMMATION [None]
